FAERS Safety Report 12539974 (Version 1)
Quarter: 2016Q3

REPORT INFORMATION
  Report Type: Spontaneous
  Country: US (occurrence: US)
  Receive Date: 20160708
  Receipt Date: 20160708
  Transmission Date: 20161109
  Serious: No
  Sender: FDA-Public Use
  Company Number: US-GLAXOSMITHKLINE-US2016092744

PATIENT
  Sex: Male

DRUGS (2)
  1. NEBULIZED ALBUTEROL [Concomitant]
     Active Substance: ALBUTEROL
  2. BREO ELLIPTA [Suspect]
     Active Substance: FLUTICASONE FUROATE\VILANTEROL TRIFENATATE
     Indication: CHRONIC OBSTRUCTIVE PULMONARY DISEASE
     Dosage: UNK
     Dates: start: 20160614

REACTIONS (5)
  - Hypertension [Unknown]
  - Panic attack [Unknown]
  - Sputum increased [Unknown]
  - Death of relative [Unknown]
  - Dyspnoea [Unknown]

NARRATIVE: CASE EVENT DATE: 201604
